APPROVED DRUG PRODUCT: KANAMYCIN SULFATE
Active Ingredient: KANAMYCIN SULFATE
Strength: EQ 1GM BASE/3ML
Dosage Form/Route: INJECTABLE;INJECTION
Application: A062466 | Product #002
Applicant: INTERNATIONAL MEDICATION SYSTEMS LTD
Approved: Sep 30, 1983 | RLD: No | RS: No | Type: DISCN